FAERS Safety Report 8151318-0 (Version None)
Quarter: 2012Q1

REPORT INFORMATION
  Report Type: 
  Country: None (occurrence: None)
  Receive Date: 20120220
  Receipt Date: 20120215
  Transmission Date: 20120608
  Serious: Yes (Death, Hospitalization)
  Sender: FDA-Public Use
  Company Number: GB-ASTRAZENECA-2011SE43711

PATIENT
  Age: 21 Year
  Sex: Male
  Weight: 120 kg

DRUGS (7)
  1. LYRICA [Suspect]
     Indication: OBSESSIVE-COMPULSIVE DISORDER
     Route: 048
     Dates: start: 20091101, end: 20110705
  2. FLUOXETINE [Suspect]
     Indication: OBSESSIVE-COMPULSIVE DISORDER
     Route: 048
     Dates: start: 20091101, end: 20110705
  3. ANTIPSYCHOTICS [Concomitant]
  4. FLUOXETINE [Suspect]
     Indication: DEPRESSED MOOD
     Route: 048
     Dates: start: 20091101, end: 20110705
  5. LYRICA [Suspect]
     Indication: ANXIETY
     Route: 048
     Dates: start: 20091101, end: 20110705
  6. SEROQUEL XR [Suspect]
     Indication: OBSESSIVE-COMPULSIVE DISORDER
     Route: 048
     Dates: start: 20091101, end: 20110705
  7. SEROQUEL XR [Suspect]
     Indication: PSYCHOTIC DISORDER
     Route: 048
     Dates: start: 20091101, end: 20110705

REACTIONS (8)
  - RHABDOMYOLYSIS [None]
  - SEPTIC SHOCK [None]
  - PYREXIA [None]
  - PANCREATITIS NECROTISING [None]
  - HYPERPYREXIA [None]
  - MULTI-ORGAN FAILURE [None]
  - ABDOMINAL PAIN [None]
  - VOMITING [None]
